FAERS Safety Report 18459047 (Version 2)
Quarter: 2021Q2

REPORT INFORMATION
  Report Type: Report from Study
  Country: FR (occurrence: FR)
  Receive Date: 20201103
  Receipt Date: 20210615
  Transmission Date: 20210717
  Serious: Yes (Hospitalization, Other)
  Sender: FDA-Public Use
  Company Number: FR-MYLANLABS-2020M1090981

PATIENT
  Age: 53 Year
  Sex: Male
  Weight: 82 kg

DRUGS (25)
  1. KETOCONAZOLE HRA [Interacting]
     Active Substance: KETOCONAZOLE
     Indication: CUSHING^S SYNDROME
     Dosage: 800 MILLIGRAM, QD
     Route: 048
     Dates: start: 20200922
  2. KETOCONAZOLE HRA [Interacting]
     Active Substance: KETOCONAZOLE
     Dosage: 1000 MILLIGRAM, QD
     Route: 048
     Dates: start: 20200815, end: 20200819
  3. DIFFU K [Suspect]
     Active Substance: POTASSIUM CHLORIDE
     Indication: HYPOKALAEMIA
     Dosage: UNK
     Route: 048
  4. AMLOR [Concomitant]
     Active Substance: AMLODIPINE BESYLATE
     Indication: HYPERTENSION
     Dosage: 5 MILLIGRAM, QD
     Route: 048
  5. PANTOPRAZOLE [Concomitant]
     Active Substance: PANTOPRAZOLE
     Indication: PROPHYLAXIS
     Dosage: 40 MILLIGRAM, QD
     Route: 048
  6. NEBIVOLOL. [Suspect]
     Active Substance: NEBIVOLOL
     Indication: HYPERTENSION
     Dosage: 5 MILLIGRAM, QD
     Route: 048
  7. HYPERIUM [Concomitant]
     Active Substance: RILMENIDINE PHOSPHATE
     Indication: HYPERTENSION
     Dosage: 1 MILLIGRAM, QD
     Route: 048
  8. COVERAM [Suspect]
     Active Substance: AMLODIPINE\PERINDOPRIL
     Indication: HYPERTENSION
     Dosage: 8 MILLIGRAM, QD
     Route: 048
  9. ALDACTONE [Suspect]
     Active Substance: SPIRONOLACTONE
     Indication: HYPERTENSION
     Dosage: 100 MILLIGRAM, QD
     Route: 048
  10. TEMERIT DUO [Suspect]
     Active Substance: HYDROCHLOROTHIAZIDE\NEBIVOLOL HYDROCHLORIDE
     Indication: HYPERTENSION
     Dosage: 5 MILLIGRAM, QD
     Route: 048
  11. KETOCONAZOLE HRA [Interacting]
     Active Substance: KETOCONAZOLE
     Dosage: 400 MILLIGRAM, QD
     Route: 048
     Dates: start: 20200908, end: 20200914
  12. UVEDOSE [Concomitant]
     Active Substance: CHOLECALCIFEROL
     Indication: VITAMIN D DEFICIENCY
     Dosage: UNK
  13. COVERSYL                           /00790702/ [Concomitant]
     Active Substance: PERINDOPRIL
     Indication: HYPERTENSION
     Dosage: 8 MILLIGRAM, QD
     Route: 048
  14. ABASAGLAR [Concomitant]
     Active Substance: INSULIN GLARGINE
     Indication: DIABETES MELLITUS
     Dosage: 20 INTERNATIONAL UNIT, QD
     Route: 058
  15. JANUVIA [Concomitant]
     Active Substance: SITAGLIPTIN PHOSPHATE
     Indication: DIABETES MELLITUS
     Dosage: 100 MILLIGRAM, QD
     Route: 048
  16. KETOCONAZOLE HRA [Interacting]
     Active Substance: KETOCONAZOLE
     Dosage: 600 MILLIGRAM, QD
     Route: 048
     Dates: start: 20200724, end: 20200814
  17. TAHOR [Concomitant]
     Active Substance: ATORVASTATIN CALCIUM
     Indication: DYSLIPIDAEMIA
     Dosage: 10 MILLIGRAM, QD
     Route: 048
  18. TARDYFERON [Concomitant]
     Active Substance: FERROUS SULFATE
     Indication: ANAEMIA
     Dosage: UNK
  19. NOVORAPID [Concomitant]
     Active Substance: INSULIN ASPART
     Indication: DIABETES MELLITUS
     Dosage: UNK
  20. OSUTIDINE [Concomitant]
     Indication: CUSHING^S SYNDROME
     Dosage: 30 MILLIGRAM, QD
     Route: 048
     Dates: start: 20200903
  21. METFORMIN [Suspect]
     Active Substance: METFORMIN HYDROCHLORIDE
     Indication: DIABETES MELLITUS
     Dosage: 2 GRAM, QD
     Route: 048
  22. KETOCONAZOLE HRA [Interacting]
     Active Substance: KETOCONAZOLE
     Dosage: 1000 MILLIGRAM, QD
     Route: 048
     Dates: start: 20200915, end: 20200921
  23. LASILIX                            /00032601/ [Suspect]
     Active Substance: FUROSEMIDE
     Indication: CARDIAC FAILURE
     Dosage: 40 MILLIGRAM, QD
     Route: 048
  24. KARDEGIC [Concomitant]
     Active Substance: ASPIRIN DL-LYSINE
     Indication: CARDIAC FAILURE
     Dosage: 75 MILLIGRAM, QD
     Route: 048
  25. OSILODROSTAT [Concomitant]
     Active Substance: OSILODROSTAT
     Indication: CUSHING^S SYNDROME
     Dosage: 30 MILLIGRAM, QD
     Route: 048
     Dates: start: 20200903

REACTIONS (6)
  - Drug ineffective [Recovered/Resolved]
  - Hypokalaemia [Recovered/Resolved]
  - Acute kidney injury [Recovered/Resolved]
  - Drug interaction [Unknown]
  - Hyperkalaemia [Recovered/Resolved]
  - Labelled drug-drug interaction medication error [Unknown]
